FAERS Safety Report 17564549 (Version 1)
Quarter: 2020Q1

REPORT INFORMATION
  Report Type: Spontaneous
  Country: JP (occurrence: JP)
  Receive Date: 20200320
  Receipt Date: 20200320
  Transmission Date: 20200409
  Serious: Yes (Hospitalization)
  Sender: FDA-Public Use
  Company Number: JP-AMGEN-JPNSP2020046853

PATIENT
  Age: 5 Decade
  Sex: Female

DRUGS (5)
  1. EPIRUBICIN HYDROCHLORIDE. [Concomitant]
     Active Substance: EPIRUBICIN HYDROCHLORIDE
     Dosage: UNK
     Route: 041
  2. G-LASTA [Suspect]
     Active Substance: PEGFILGRASTIM
     Indication: COLONY STIMULATING FACTOR THERAPY
     Dosage: 3.6 MILLIGRAM, IN THE SECOND CYCLE
     Route: 058
  3. CYCLOPHOSPHAMIDE. [Concomitant]
     Active Substance: CYCLOPHOSPHAMIDE
     Dosage: UNK
     Route: 041
  4. CYCLOPHOSPHAMIDE. [Concomitant]
     Active Substance: CYCLOPHOSPHAMIDE
     Indication: HER-2 POSITIVE BREAST CANCER
     Dosage: UNK
     Route: 041
  5. EPIRUBICIN HYDROCHLORIDE. [Concomitant]
     Active Substance: EPIRUBICIN HYDROCHLORIDE
     Indication: HER-2 POSITIVE BREAST CANCER
     Dosage: UNK
     Route: 041

REACTIONS (1)
  - Vasculitis [Recovering/Resolving]
